FAERS Safety Report 9192827 (Version 1)
Quarter: 2013Q1

REPORT INFORMATION
  Report Type: Spontaneous
  Country: CM (occurrence: CM)
  Receive Date: 20130327
  Receipt Date: 20130327
  Transmission Date: 20140127
  Serious: Yes (Hospitalization)
  Sender: FDA-Public Use
  Company Number: CM-PFIZER INC-2013095654

PATIENT
  Age: 23 Year
  Sex: Female

DRUGS (1)
  1. LINCOCINE [Suspect]
     Indication: FURUNCLE
     Dosage: 500 MG, 2X/DAY
     Route: 048

REACTIONS (2)
  - Mouth ulceration [Recovered/Resolved]
  - Toxic epidermal necrolysis [Recovered/Resolved]
